FAERS Safety Report 12495013 (Version 1)
Quarter: 2016Q2

REPORT INFORMATION
  Report Type: Spontaneous
  Country: US (occurrence: None)
  Receive Date: 20160623
  Receipt Date: 20160623
  Transmission Date: 20160815
  Serious: Yes (Hospitalization)
  Sender: FDA-Public Use
  Company Number: None

PATIENT
  Age: 52 Year
  Sex: Male
  Weight: 88.91 kg

DRUGS (3)
  1. ANDROGEL [Concomitant]
     Active Substance: TESTOSTERONE
  2. ATENOLOL. [Concomitant]
     Active Substance: ATENOLOL
  3. INVOKANA [Suspect]
     Active Substance: CANAGLIFLOZIN
     Indication: TYPE 2 DIABETES MELLITUS
     Dates: start: 20140614, end: 20160408

REACTIONS (7)
  - Hypotension [None]
  - Cholecystectomy [None]
  - Influenza [None]
  - Gastrooesophageal reflux disease [None]
  - Pancreatitis [None]
  - Weight decreased [None]
  - Abdominal discomfort [None]

NARRATIVE: CASE EVENT DATE: 20160415
